FAERS Safety Report 5638114-0 (Version None)
Quarter: 2008Q1

REPORT INFORMATION
  Report Type: 
  Country: None (occurrence: None)
  Receive Date: 20080221
  Receipt Date: 20080210
  Transmission Date: 20080703
  Serious: Yes (Other)
  Sender: FDA-Public Use
  Company Number: CIO08002440

PATIENT
  Age: 20 Year
  Sex: Female
  Weight: 95.2 kg

DRUGS (3)
  1. NYQUIL COLD/FLU DOXYLAMINE(DEXTROMETHORPHAN HYDROBROMIDE 10 OR 15 MG, [Suspect]
     Dosage: 2 LIQCAP, 1 ONLY, ORAL
     Route: 048
     Dates: start: 20080210, end: 20080210
  2. ADVIL [Suspect]
     Dosage: 2  TABLET, 1 ONLY FOR 1 DAY, ORAL
     Route: 048
     Dates: start: 20080210, end: 20080210
  3. ALKA-SELTZER PLUS /01082701/(PHENYLPROPANOLAMINE BITARTRATE, CHLORPHE [Suspect]
     Dosage: 2 TABLET, 1 ONLY FOR 1 DAY, ORAL
     Route: 048
     Dates: start: 20080210, end: 20080210

REACTIONS (5)
  - DRUG ADMINISTRATION ERROR [None]
  - DYSKINESIA [None]
  - HYPERSENSITIVITY [None]
  - LOSS OF CONSCIOUSNESS [None]
  - TREMOR [None]
